FAERS Safety Report 10509118 (Version 1)
Quarter: 2014Q3

REPORT INFORMATION
  Report Type: Spontaneous
  Country: US (occurrence: None)
  Receive Date: 20140915
  Receipt Date: 20140915
  Transmission Date: 20150326
  Serious: Yes (Other)
  Sender: FDA-Public Use
  Company Number: 2014-US-002762

PATIENT
  Age: 44 Year
  Sex: Female
  Weight: 71.7 kg

DRUGS (5)
  1. VITAMIN D [Concomitant]
     Active Substance: CHOLECALCIFEROL
  2. ASPIRIN. [Concomitant]
     Active Substance: ASPIRIN
  3. XYREM [Suspect]
     Active Substance: SODIUM OXYBATE
     Indication: NARCOLEPSY
     Route: 048
     Dates: start: 200310
  4. FISH OIL [Concomitant]
     Active Substance: FISH OIL
  5. XYREM [Suspect]
     Active Substance: SODIUM OXYBATE
     Indication: CATAPLEXY
     Route: 048
     Dates: start: 200310

REACTIONS (3)
  - Weight decreased [None]
  - Confusional state [None]
  - Acute sinusitis [None]

NARRATIVE: CASE EVENT DATE: 2012
